FAERS Safety Report 16570485 (Version 1)
Quarter: 2019Q3

REPORT INFORMATION
  Report Type: Spontaneous
  Country: EG (occurrence: EG)
  Receive Date: 20190715
  Receipt Date: 20190715
  Transmission Date: 20191004
  Serious: Yes (Other)
  Sender: FDA-Public Use
  Company Number: EG-ROCHE-2353486

PATIENT
  Sex: Female

DRUGS (1)
  1. XOLAIR [Suspect]
     Active Substance: OMALIZUMAB
     Indication: CHRONIC SPONTANEOUS URTICARIA
     Dosage: (FOR 6 MONTHS)
     Route: 065

REACTIONS (4)
  - Suicidal ideation [Unknown]
  - Urticaria [Not Recovered/Not Resolved]
  - Disease recurrence [Unknown]
  - Depression [Unknown]
